FAERS Safety Report 7532148-7 (Version None)
Quarter: 2011Q2

REPORT INFORMATION
  Report Type: 
  Country: None (occurrence: None)
  Receive Date: 20110608
  Receipt Date: 20110606
  Transmission Date: 20111010
  Serious: No
  Sender: FDA-Public Use
  Company Number: US-PFIZER INC-2011123007

PATIENT
  Age: 32 Year
  Sex: Female

DRUGS (2)
  1. LYRICA [Suspect]
     Indication: BACK PAIN
     Dosage: UNK
     Route: 048
     Dates: start: 20100101, end: 20100101
  2. TYLENOL-500 [Concomitant]
     Dosage: UNK

REACTIONS (2)
  - FEELING ABNORMAL [None]
  - DIZZINESS [None]
